FAERS Safety Report 6493747-7 (Version None)
Quarter: 2009Q4

REPORT INFORMATION
  Report Type: 
  Country: None (occurrence: None)
  Receive Date: 20091214
  Receipt Date: 20081103
  Transmission Date: 20100525
  Serious: No
  Sender: FDA-Public Use
  Company Number: US-BRISTOL-MYERS SQUIBB COMPANY-14288468

PATIENT
  Age: 52 Year
  Sex: Female

DRUGS (9)
  1. ABILIFY [Suspect]
     Indication: DEPRESSED MOOD
     Dosage: INITIATED WITH 2MG;INCREASED TO 4MG.
     Route: 048
  2. ABILIFY [Suspect]
     Indication: MOOD SWINGS
     Dosage: INITIATED WITH 2MG;INCREASED TO 4MG.
     Route: 048
  3. ABILIFY [Suspect]
     Indication: BIPOLAR II DISORDER
     Dosage: INITIATED WITH 2MG;INCREASED TO 4MG.
     Route: 048
  4. ABILIFY [Suspect]
     Indication: DEPRESSION
     Dosage: INITIATED WITH 2MG;INCREASED TO 4MG.
     Route: 048
  5. LIPITOR [Concomitant]
  6. LAMICTAL [Concomitant]
     Dosage: 300 MG AM
  7. KLONOPIN [Concomitant]
  8. RISPERIDONE [Concomitant]
  9. ENBREL [Concomitant]
     Indication: PSORIATIC ARTHROPATHY
     Dosage: INJECTION.

REACTIONS (1)
  - PARAESTHESIA [None]
